FAERS Safety Report 12659162 (Version 8)
Quarter: 2017Q3

REPORT INFORMATION
  Report Type: Spontaneous
  Country: US (occurrence: US)
  Receive Date: 20160817
  Receipt Date: 20170828
  Transmission Date: 20171127
  Serious: Yes (Hospitalization, Other)
  Sender: FDA-Public Use
  Company Number: US-PFIZER INC-2016366847

PATIENT
  Age: 69 Year
  Sex: Female
  Weight: 82 kg

DRUGS (33)
  1. PROCTOZONE HC [Concomitant]
     Active Substance: HYDROCORTISONE
     Dosage: 2.5 % CREAM, USE AS DIRECTED APPLY PRN Q4 HOURS
     Route: 054
     Dates: start: 20090716
  2. SYMBICORT [Concomitant]
     Active Substance: BUDESONIDE\FORMOTEROL FUMARATE DIHYDRATE
     Dosage: UNK UNK, 2X/DAY ([BUDESONIDE: 80MCG/ACT]/[FORMOTEROL FUMARATE: 4.5MCG/ACT])
     Route: 055
     Dates: start: 20130222
  3. ULTRAM [Concomitant]
     Active Substance: TRAMADOL HYDROCHLORIDE
     Indication: PAIN
     Dosage: UNK
     Dates: start: 2006, end: 2006
  4. XOPENEX HFA [Concomitant]
     Active Substance: LEVALBUTEROL TARTRATE
     Dosage: UNK
     Dates: start: 2010
  5. ZYRTEC [Concomitant]
     Active Substance: CETIRIZINE HYDROCHLORIDE
     Dosage: 10 MG, 1X/DAY(1 PO Q DAY)
     Route: 048
     Dates: start: 20130808
  6. LYRICA [Suspect]
     Active Substance: PREGABALIN
     Indication: TRIGEMINAL NEURALGIA
     Dosage: 75 MG, (4 TO 5 XS A DAY)
     Dates: start: 200605
  7. LYRICA [Suspect]
     Active Substance: PREGABALIN
     Dosage: 150 MG, 3X/DAY, (TAKE 2 CAPSULE EVERY 8 HOURS)
     Route: 048
     Dates: start: 20161228
  8. ALPRAZOLAM. [Concomitant]
     Active Substance: ALPRAZOLAM
     Dosage: 1 MG, AS NEEDED(1 TABLET EVERY 6 HOURS PRN)
     Route: 048
     Dates: start: 2006
  9. CYANOCOBALAMIN. [Concomitant]
     Active Substance: CYANOCOBALAMIN
     Dosage: UNK
     Dates: start: 2004
  10. CYANOCOBALAMIN. [Concomitant]
     Active Substance: CYANOCOBALAMIN
     Dosage: 1000 MCG/ML, 1 ML IM EVERY 2 WEEKS
     Route: 030
     Dates: start: 20160405
  11. CYANOCOBALAMIN. [Concomitant]
     Active Substance: CYANOCOBALAMIN
     Dosage: 1000 MCG/ML, 1 ML IM EVERY 2 WEEKS
     Route: 030
     Dates: start: 20160628
  12. ACETAMINOPHEN W/HYDROCODONE [Concomitant]
     Active Substance: ACETAMINOPHEN\HYDROCODONE
     Dosage: 0.5 MG, AS NEEDED [(HYDROCODONE: 5MG)/(PARACETAMOL: 325 MG)]
     Route: 048
     Dates: start: 20170612
  13. LYRICA [Suspect]
     Active Substance: PREGABALIN
     Dosage: 75 MG, EVERY SIX HOURS
     Route: 048
  14. NITROSTAT [Concomitant]
     Active Substance: NITROGLYCERIN
     Indication: CHEST PAIN
     Dosage: UNK, AS NEEDED
     Dates: start: 2006
  15. SYMBICORT [Concomitant]
     Active Substance: BUDESONIDE\FORMOTEROL FUMARATE DIHYDRATE
     Dosage: UNK, 2X/DAY, (160-4.5 MCG/ACT INHALATION AEROSOL, INHALE 1 PUFF TWICE A DAY)
     Route: 055
     Dates: start: 20170709
  16. ULTRAM [Concomitant]
     Active Substance: TRAMADOL HYDROCHLORIDE
     Dosage: 50 MG, AS NEEDED(1 TABLET EVERY 4 TO 6 HOURS AS NEEDED)
     Route: 048
     Dates: start: 20150923
  17. LYRICA [Suspect]
     Active Substance: PREGABALIN
     Dosage: 75 MG, AS NEEDED(1 PO Q6 PRN/1 CAPSULE EVERY 6 HOURS PRN/HAD TO TAKE EVERY 5 HOURS)
     Route: 048
     Dates: start: 20150923
  18. ASPIRIN (E.C.) [Concomitant]
     Active Substance: ASPIRIN
     Dosage: 81 MG, AS NEEDED
     Route: 048
     Dates: start: 20170612
  19. LYRICA [Suspect]
     Active Substance: PREGABALIN
     Dosage: UNK
     Route: 048
  20. LYRICA [Suspect]
     Active Substance: PREGABALIN
     Dosage: 50 MG, 3X/DAY
     Route: 048
     Dates: start: 20130507
  21. NITROSTAT [Concomitant]
     Active Substance: NITROGLYCERIN
     Dosage: 0.4 MG, AS NEEDED (1 TABLET UNDER THE TONGUE EVERY 5 MINUTES FOR UP TO 3 DOSES AS NEEDED )
     Route: 060
     Dates: start: 20151119
  22. PROCTOZONE HC [Concomitant]
     Active Substance: HYDROCORTISONE
     Dosage: UNK
     Dates: start: 2008, end: 2008
  23. ZYRTEC [Concomitant]
     Active Substance: CETIRIZINE HYDROCHLORIDE
     Dosage: UNK
     Dates: start: 2006
  24. NORTRIPTYLINE HCL [Concomitant]
     Active Substance: NORTRIPTYLINE HYDROCHLORIDE
     Dosage: 25 MG, 2X/DAY
     Route: 048
     Dates: start: 20161026
  25. PROTONIX [Concomitant]
     Active Substance: PANTOPRAZOLE SODIUM
     Dosage: 40 MG, 1X/DAY
     Route: 048
     Dates: start: 20140318
  26. LYRICA [Suspect]
     Active Substance: PREGABALIN
     Dosage: 300 MG, DAILY
     Route: 048
  27. CYANOCOBALAMIN. [Concomitant]
     Active Substance: CYANOCOBALAMIN
     Dosage: 1000 MCG/ML, 1 ML IM EVERY 2 WEEKS
     Route: 030
     Dates: start: 20160712
  28. CYANOCOBALAMIN. [Concomitant]
     Active Substance: CYANOCOBALAMIN
     Dosage: 1 ML, MONTHLY
     Route: 030
     Dates: start: 20170719
  29. XOPENEX [Concomitant]
     Active Substance: LEVALBUTEROL HYDROCHLORIDE
     Indication: ASTHMA
     Dosage: UNK UNK, AS NEEDED (0.63 MG/3ML INHALATION, ONE VIAL EVERY 6 HRS AS NEEDED)
     Route: 055
     Dates: start: 20100304
  30. LYRICA [Suspect]
     Active Substance: PREGABALIN
     Dosage: 200 MG, DAILY
     Route: 048
  31. CYANOCOBALAMIN. [Concomitant]
     Active Substance: CYANOCOBALAMIN
     Dosage: 1000 MCG/ML, 1 ML IM EVERY 2 WEEKS
     Route: 030
     Dates: start: 20160726
  32. PYRIDIUM [Concomitant]
     Active Substance: PHENAZOPYRIDINE
     Dosage: 100 MG, 2X/DAY
     Route: 048
     Dates: start: 20120515
  33. XOPENEX HFA [Concomitant]
     Active Substance: LEVALBUTEROL TARTRATE
     Dosage: UNK UNK, AS NEEDED (45 MCG/ACT INHALATION)
     Route: 055
     Dates: start: 20150204

REACTIONS (22)
  - Condition aggravated [Not Recovered/Not Resolved]
  - Body height decreased [Not Recovered/Not Resolved]
  - Cerebral disorder [Unknown]
  - Tooth disorder [Unknown]
  - Dizziness [Not Recovered/Not Resolved]
  - Drug dependence [Not Recovered/Not Resolved]
  - Fall [Not Recovered/Not Resolved]
  - Condition aggravated [Not Recovered/Not Resolved]
  - Balance disorder [Not Recovered/Not Resolved]
  - Swelling [Not Recovered/Not Resolved]
  - Condition aggravated [Not Recovered/Not Resolved]
  - Speech disorder [Not Recovered/Not Resolved]
  - Swollen tongue [Not Recovered/Not Resolved]
  - Eating disorder [Not Recovered/Not Resolved]
  - Disease progression [Unknown]
  - Cataract [Unknown]
  - Paralysis [Recovered/Resolved]
  - Lip swelling [Not Recovered/Not Resolved]
  - Hallucination [Recovered/Resolved]
  - Trigeminal neuralgia [Unknown]
  - Peripheral swelling [Not Recovered/Not Resolved]
  - Paraesthesia [Unknown]

NARRATIVE: CASE EVENT DATE: 2006
